FAERS Safety Report 21281053 (Version 2)
Quarter: 2022Q3

REPORT INFORMATION
  Report Type: Spontaneous
  Country: US (occurrence: US)
  Receive Date: 20220901
  Receipt Date: 20220902
  Transmission Date: 20221027
  Serious: Yes (Other)
  Sender: FDA-Public Use
  Company Number: US-PFIZER INC-202201108724

PATIENT
  Age: 80 Year
  Sex: Female

DRUGS (1)
  1. PAXLOVID [Suspect]
     Active Substance: NIRMATRELVIR\RITONAVIR
     Indication: COVID-19 treatment
     Dosage: 3 DF

REACTIONS (13)
  - Choking [Unknown]
  - Oropharyngeal discomfort [Recovered/Resolved]
  - Enlarged uvula [Unknown]
  - Swollen tongue [Recovered/Resolved]
  - Lip discolouration [Unknown]
  - Facial pain [Unknown]
  - Skin disorder [Unknown]
  - Gingival recession [Not Recovered/Not Resolved]
  - Dysgeusia [Recovered/Resolved]
  - Tonsillar disorder [Unknown]
  - Lip injury [Unknown]
  - Lip pain [Unknown]
  - Lip disorder [Unknown]

NARRATIVE: CASE EVENT DATE: 20220829
